FAERS Safety Report 14985888 (Version 9)
Quarter: 2019Q3

REPORT INFORMATION
  Report Type: Spontaneous
  Country: JP (occurrence: JP)
  Receive Date: 20180607
  Receipt Date: 20190911
  Transmission Date: 20191004
  Serious: Yes (Hospitalization, Other)
  Sender: FDA-Public Use
  Company Number: JP-LUNDBECK-DKLU2049760

PATIENT
  Age: 8 Month
  Sex: Female
  Weight: 7 kg

DRUGS (7)
  1. SABRIL [Suspect]
     Active Substance: VIGABATRIN
     Route: 048
     Dates: start: 20180418, end: 20180528
  2. SABRIL [Suspect]
     Active Substance: VIGABATRIN
     Route: 048
  3. SABRIL [Suspect]
     Active Substance: VIGABATRIN
     Indication: INFANTILE SPASMS
     Route: 048
     Dates: start: 20180404, end: 20180410
  4. SABRIL [Suspect]
     Active Substance: VIGABATRIN
     Route: 048
     Dates: start: 20180411, end: 20180417
  5. SABRIL [Suspect]
     Active Substance: VIGABATRIN
     Route: 048
     Dates: start: 20180403, end: 20180529
  6. NITRAZEPAM [Concomitant]
     Active Substance: NITRAZEPAM
     Indication: INFANTILE SPASMS
     Route: 065
     Dates: start: 2018
  7. ZONISAMIDE. [Concomitant]
     Active Substance: ZONISAMIDE
     Indication: INFANTILE SPASMS
     Route: 065
     Dates: start: 2018

REACTIONS (5)
  - Respiratory depression [Recovered/Resolved]
  - Pulmonary oedema [Recovered/Resolved]
  - Toxic encephalopathy [Recovered/Resolved]
  - Poor sucking reflex [Unknown]
  - Hyporesponsive to stimuli [Unknown]

NARRATIVE: CASE EVENT DATE: 201805
